FAERS Safety Report 9970038 (Version 1)
Quarter: 2014Q1

REPORT INFORMATION
  Report Type: Spontaneous
  Country: KR (occurrence: KR)
  Receive Date: 20140306
  Receipt Date: 20140306
  Transmission Date: 20141002
  Serious: Yes (Hospitalization)
  Sender: FDA-Public Use
  Company Number: KR-ROCHE-1360499

PATIENT
  Age: 12 Year
  Sex: 0
  Weight: 50 kg

DRUGS (1)
  1. TAMIFLU [Suspect]
     Indication: INFLUENZA
     Dosage: 75 MG 2 CAPSULES
     Route: 048
     Dates: start: 20140304

REACTIONS (3)
  - Dyskinesia [Recovered/Resolved]
  - Dizziness [Recovered/Resolved]
  - Overdose [Unknown]
